FAERS Safety Report 21075293 (Version 2)
Quarter: 2022Q3

REPORT INFORMATION
  Report Type: Spontaneous
  Country: US (occurrence: US)
  Receive Date: 20220713
  Receipt Date: 20220729
  Transmission Date: 20221026
  Serious: No
  Sender: FDA-Public Use
  Company Number: US-IDORSIA-000647-2022-US

PATIENT
  Sex: Male

DRUGS (3)
  1. QUVIVIQ [Suspect]
     Active Substance: DARIDOREXANT
     Indication: Insomnia
     Dosage: 50 MG, QD WITHIN 30 MINUTES BEFORE GOING TO BED WITH AT LEAST 7 HOURS REMAINING PRIOR TO PLANNED AWA
     Route: 048
     Dates: start: 20220615, end: 20220618
  2. LOSARTAN [Concomitant]
     Active Substance: LOSARTAN
     Dosage: 50 MG, QD
     Route: 048
  3. METOPROLOL [Concomitant]
     Active Substance: METOPROLOL
     Dosage: 50 MG, QD
     Route: 048

REACTIONS (3)
  - Drug intolerance [Unknown]
  - Feeling abnormal [Unknown]
  - Hangover [Unknown]
